FAERS Safety Report 26052936 (Version 1)
Quarter: 2025Q4

REPORT INFORMATION
  Report Type: Spontaneous
  Country: US (occurrence: US)
  Receive Date: 20251117
  Receipt Date: 20251117
  Transmission Date: 20260118
  Serious: No
  Sender: MAYNE
  Company Number: US-MAYNE PHARMA-2025MYN000215

PATIENT
  Age: 5 Decade
  Sex: Female

DRUGS (1)
  1. BIJUVA [Suspect]
     Active Substance: ESTRADIOL\PROGESTERONE
     Indication: Product used for unknown indication
     Dosage: 1 MG FOR 6 WEEKS, ONE PILL NIGHTLY WITH FOOD
     Route: 065

REACTIONS (2)
  - Drug ineffective [Unknown]
  - Drug level decreased [Unknown]
